FAERS Safety Report 6833984-2 (Version None)
Quarter: 2010Q3

REPORT INFORMATION
  Report Type: 
  Country: None (occurrence: None)
  Receive Date: 20100712
  Receipt Date: 20070408
  Transmission Date: 20110219
  Serious: No
  Sender: FDA-Public Use
  Company Number: US-PFIZER INC-2007028145

PATIENT
  Sex: Female
  Weight: 63.5 kg

DRUGS (5)
  1. CHANTIX [Suspect]
     Indication: SMOKING CESSATION THERAPY
     Dates: start: 20070405
  2. CEPHALEXIN [Concomitant]
  3. CHONDROITIN [Concomitant]
  4. MUCINEX [Concomitant]
  5. VITAMINS [Concomitant]

REACTIONS (2)
  - DIZZINESS [None]
  - LETHARGY [None]
